FAERS Safety Report 19484411 (Version 1)
Quarter: 2021Q3

REPORT INFORMATION
  Report Type: Spontaneous
  Country: DE (occurrence: DE)
  Receive Date: 20210701
  Receipt Date: 20210701
  Transmission Date: 20211014
  Serious: Yes (Other)
  Sender: FDA-Public Use
  Company Number: NVSC2021DE145616

PATIENT
  Age: 74 Year
  Sex: Female
  Weight: 78 kg

DRUGS (3)
  1. COLCHICIN [Suspect]
     Active Substance: COLCHICINE
     Indication: DRESSLER^S SYNDROME
     Dosage: 0.5 MG, QD
     Route: 048
     Dates: start: 20210615
  2. COLCHICIN [Suspect]
     Active Substance: COLCHICINE
     Indication: PERICARDITIS
     Dosage: 1 MG, QD
     Route: 048
     Dates: start: 20210523
  3. ATORVASTATIN [Suspect]
     Active Substance: ATORVASTATIN
     Indication: MYOCARDIAL INFARCTION
     Dosage: 40 MG, QD
     Route: 048
     Dates: start: 20210521

REACTIONS (2)
  - Myopathy [Unknown]
  - Paralysis [Unknown]

NARRATIVE: CASE EVENT DATE: 20210525
